FAERS Safety Report 25046506 (Version 2)
Quarter: 2025Q1

REPORT INFORMATION
  Report Type: Spontaneous
  Country: US (occurrence: US)
  Receive Date: 20250306
  Receipt Date: 20250325
  Transmission Date: 20250409
  Serious: No
  Sender: BIOVITRUM
  Company Number: US-BIOVITRUM-2025-US-002897

PATIENT
  Age: 75 Year
  Sex: Male

DRUGS (1)
  1. VONJO [Suspect]
     Active Substance: PACRITINIB
     Indication: Myelofibrosis
     Route: 048
     Dates: start: 20230629

REACTIONS (4)
  - Anaemia [Unknown]
  - Illness [Unknown]
  - Product dose omission issue [Unknown]
  - Product availability issue [Unknown]
